FAERS Safety Report 20043066 (Version 1)
Quarter: 2021Q4

REPORT INFORMATION
  Report Type: Spontaneous
  Country: GR (occurrence: None)
  Receive Date: 20211108
  Receipt Date: 20211108
  Transmission Date: 20220304
  Serious: Yes (Death, Hospitalization, Other)
  Sender: FDA-Public Use
  Company Number: GR-ROCHE-2947016

PATIENT
  Age: 16 Year
  Sex: Female

DRUGS (1)
  1. TAMIFLU [Suspect]
     Active Substance: OSELTAMIVIR PHOSPHATE
     Indication: Product used for unknown indication
     Route: 065

REACTIONS (7)
  - Influenza like illness [Unknown]
  - Chest pain [Unknown]
  - Leukopenia [Unknown]
  - Lymphocytosis [Unknown]
  - Catatonia [Unknown]
  - Swelling [Unknown]
  - Myocarditis [Fatal]

NARRATIVE: CASE EVENT DATE: 20190222
